FAERS Safety Report 6839995-5 (Version None)
Quarter: 2010Q3

REPORT INFORMATION
  Report Type: 
  Country: None (occurrence: None)
  Receive Date: 20100709
  Receipt Date: 20100630
  Transmission Date: 20110219
  Serious: Yes (Hospitalization)
  Sender: FDA-Public Use
  Company Number: 2010MA000362

PATIENT
  Age: 63 Year
  Sex: Female

DRUGS (4)
  1. METOCLOPRAMIDE [Suspect]
     Dates: start: 20010528
  2. METOCLOPRAMIDE [Suspect]
     Dosage: 5 MG; IV
     Route: 042
     Dates: start: 20070822, end: 20090214
  3. CON MEDS [Concomitant]
  4. PREV MEDS [Concomitant]

REACTIONS (57)
  - ABDOMINAL ADHESIONS [None]
  - ABDOMINAL HERNIA [None]
  - ABDOMINAL PAIN [None]
  - ACTIVITIES OF DAILY LIVING IMPAIRED [None]
  - AKATHISIA [None]
  - AMNESIA [None]
  - AORTIC BYPASS [None]
  - AORTIC OCCLUSION [None]
  - ASTHENIA [None]
  - ATAXIA [None]
  - BLOOD POTASSIUM DECREASED [None]
  - BRADYKINESIA [None]
  - BRONCHITIS CHRONIC [None]
  - CHRONIC OBSTRUCTIVE PULMONARY DISEASE [None]
  - COELIAC ARTERY STENOSIS [None]
  - COLITIS [None]
  - DECREASED VIBRATORY SENSE [None]
  - DEPRESSION [None]
  - DIARRHOEA [None]
  - DIVERTICULUM INTESTINAL [None]
  - DIZZINESS [None]
  - DYSKINESIA [None]
  - EMPHYSEMA [None]
  - EXTRAPYRAMIDAL DISORDER [None]
  - FEELING OF DESPAIR [None]
  - GAIT DISTURBANCE [None]
  - GASTRIC POLYPS [None]
  - GASTROINTESTINAL DISORDER [None]
  - HAEMATOCHEZIA [None]
  - HAEMATOMA [None]
  - HIATUS HERNIA [None]
  - HYPERLIPIDAEMIA [None]
  - INTERMITTENT CLAUDICATION [None]
  - IRRITABLE BOWEL SYNDROME [None]
  - ISCHAEMIA [None]
  - MUSCULOSKELETAL STIFFNESS [None]
  - NAUSEA [None]
  - NERVOUS SYSTEM DISORDER [None]
  - NEUROPATHY PERIPHERAL [None]
  - OESOPHAGEAL DISORDER [None]
  - PAIN [None]
  - PAIN IN EXTREMITY [None]
  - PANCREATITIS ACUTE [None]
  - PERIPHERAL COLDNESS [None]
  - PERIPHERAL VASCULAR DISORDER [None]
  - RENAL FAILURE [None]
  - SKIN DISCOLOURATION [None]
  - STAPHYLOCOCCAL INFECTION [None]
  - TARDIVE DYSKINESIA [None]
  - THROMBOSIS [None]
  - TREMOR [None]
  - URINARY TRACT INFECTION [None]
  - VASCULAR GRAFT [None]
  - VASCULAR GRAFT OCCLUSION [None]
  - VOMITING [None]
  - WHITE BLOOD CELL COUNT INCREASED [None]
  - WOUND ABSCESS [None]
